FAERS Safety Report 16780798 (Version 2)
Quarter: 2023Q2

REPORT INFORMATION
  Report Type: Spontaneous
  Country: ES (occurrence: ES)
  Receive Date: 20190906
  Receipt Date: 20230501
  Transmission Date: 20230721
  Serious: Yes (Other)
  Sender: FDA-Public Use
  Company Number: ES-GENCOM-0001

PATIENT
  Age: 67 Year
  Sex: Male

DRUGS (1)
  1. MYCOPHENOLATE MOFETIL [Suspect]
     Active Substance: MYCOPHENOLATE MOFETIL
     Indication: Kidney transplant rejection
     Dosage: 2 GRAM, QD
     Route: 065

REACTIONS (5)
  - Odynophagia [Recovered/Resolved]
  - Dysphagia [Recovered/Resolved]
  - Aphthous ulcer [Recovered/Resolved]
  - Weight decreased [Recovered/Resolved]
  - Hypophagia [Recovered/Resolved]
